FAERS Safety Report 11934512 (Version 4)
Quarter: 2017Q4

REPORT INFORMATION
  Report Type: Report from Study
  Country: CO (occurrence: CO)
  Receive Date: 20160121
  Receipt Date: 20171019
  Transmission Date: 20180320
  Serious: Yes (Hospitalization)
  Sender: FDA-Public Use
  Company Number: PHHY2016CO006857

PATIENT
  Age: 54 Year
  Sex: Male
  Weight: 95 kg

DRUGS (3)
  1. TASIGNA [Suspect]
     Active Substance: NILOTINIB
     Indication: CHRONIC MYELOID LEUKAEMIA
     Dosage: 2 DF, Q12H
     Route: 048
     Dates: start: 20150105
  2. TASIGNA [Suspect]
     Active Substance: NILOTINIB
     Dosage: 200 MG, BID
     Route: 048
     Dates: start: 201506
  3. TASIGNA [Suspect]
     Active Substance: NILOTINIB
     Dosage: 2 DF, Q12H
     Route: 048
     Dates: start: 20170108

REACTIONS (16)
  - Hypoacusis [Unknown]
  - Feeling drunk [Unknown]
  - Depressed mood [Unknown]
  - Pain [Unknown]
  - Blood disorder [Unknown]
  - Headache [Unknown]
  - Pyrexia [Unknown]
  - Splenomegaly [Unknown]
  - Abdominal pain upper [Unknown]
  - Bone pain [Unknown]
  - Abdominal pain [Unknown]
  - Limb injury [Unknown]
  - Splenitis [Unknown]
  - Head discomfort [Unknown]
  - Amnesia [Unknown]
  - Insomnia [Unknown]

NARRATIVE: CASE EVENT DATE: 20170711
